FAERS Safety Report 8886691 (Version 1)
Quarter: 2012Q4

REPORT INFORMATION
  Report Type: 
  Country: CA (occurrence: CA)
  Receive Date: 20121105
  Receipt Date: 20121105
  Transmission Date: 20130627
  Serious: Yes (Other)
  Sender: FDA-Public Use
  Company Number: PHHY2012CA099788

PATIENT
  Age: 84 Year
  Sex: Female
  Weight: 59 kg

DRUGS (2)
  1. TEGRETOL [Suspect]
     Dosage: 300 mg, daily
     Route: 048
  2. DILANTIN [Suspect]
     Dosage: 300 mg, daily
     Route: 048

REACTIONS (6)
  - Eye irritation [Recovered/Resolved]
  - Face oedema [Recovered/Resolved]
  - Odynophagia [Recovered/Resolved]
  - Rash maculo-papular [Recovered/Resolved]
  - Throat irritation [Recovered/Resolved]
  - Tongue oedema [Recovered/Resolved]
